FAERS Safety Report 21613305 (Version 1)
Quarter: 2022Q4

REPORT INFORMATION
  Report Type: Other
  Country: DE (occurrence: None)
  Receive Date: 20221118
  Receipt Date: 20221118
  Transmission Date: 20230113
  Serious: No
  Sender: FDA-Public Use
  Company Number: DE-ROCHE-2850570

PATIENT
  Sex: Female

DRUGS (3)
  1. OCREVUS [Suspect]
     Active Substance: OCRELIZUMAB
     Indication: Relapsing-remitting multiple sclerosis
     Dosage: SUBSEQUENT DOSE ON 14/DEC/2021
     Route: 042
     Dates: start: 20210614
  2. VITAMIN D3 [Concomitant]
     Active Substance: CHOLECALCIFEROL
  3. FRANKINCENSE [Concomitant]

REACTIONS (4)
  - Fatigue [Recovered/Resolved]
  - Pain in extremity [Recovered/Resolved]
  - COVID-19 [Recovered/Resolved]
  - Nasopharyngitis [Not Recovered/Not Resolved]

NARRATIVE: CASE EVENT DATE: 20210614
